FAERS Safety Report 5033421-7 (Version None)
Quarter: 2006Q2

REPORT INFORMATION
  Report Type: 
  Country: None (occurrence: None)
  Receive Date: 20060518
  Receipt Date: 20051216
  Transmission Date: 20061013
  Serious: Yes (Other)
  Sender: FDA-Public Use
  Company Number: 2005141415

PATIENT
  Age: 19 Year
  Sex: Female
  Weight: 88.4514 kg

DRUGS (5)
  1. DEPO-PROVERA [Suspect]
     Indication: CONTRACEPTION
     Dosage: SEE IMAGE
     Route: 030
     Dates: start: 20050429, end: 20050429
  2. DEPO-PROVERA [Suspect]
     Indication: CONTRACEPTION
     Dosage: SEE IMAGE
     Route: 030
     Dates: start: 20050718, end: 20050718
  3. DEPO-PROVERA [Suspect]
  4. ZITHROMAX [Concomitant]
  5. ACYCLOVIR [Concomitant]

REACTIONS (2)
  - UNINTENDED PREGNANCY [None]
  - WEIGHT INCREASED [None]
